FAERS Safety Report 4320557-9 (Version None)
Quarter: 2004Q1

REPORT INFORMATION
  Report Type: 
  Country: None (occurrence: None)
  Receive Date: 20040315
  Receipt Date: 20040122
  Transmission Date: 20041129
  Serious: Yes (Other)
  Sender: FDA-Public Use
  Company Number: 2003184498US

PATIENT
  Age: 81 Year
  Sex: Male

DRUGS (3)
  1. BEXTRA [Suspect]
     Indication: BURSITIS
     Dosage: 20 MG QD ORAL
     Route: 048
     Dates: start: 20031031, end: 20031103
  2. LIPITOR [Concomitant]
  3. COUMADIN [Concomitant]

REACTIONS (1)
  - HYPERTENSION [None]
